FAERS Safety Report 15930234 (Version 4)
Quarter: 2019Q1

REPORT INFORMATION
  Report Type: Report from Study
  Country: US (occurrence: US)
  Receive Date: 20190207
  Receipt Date: 20190301
  Transmission Date: 20190417
  Serious: Yes (Hospitalization, Other)
  Sender: FDA-Public Use
  Company Number: US-GILEAD-2019-0387854

PATIENT
  Age: 69 Year
  Sex: Female
  Weight: 117.91 kg

DRUGS (2)
  1. AMBRISENTAN [Suspect]
     Active Substance: AMBRISENTAN
     Indication: CHRONIC OBSTRUCTIVE PULMONARY DISEASE
     Dosage: 5 MG
     Route: 065
     Dates: start: 20120430
  2. AMBRISENTAN [Suspect]
     Active Substance: AMBRISENTAN
     Indication: PULMONARY HYPERTENSION
     Dosage: 10 MG, QD
     Route: 065
     Dates: start: 20120418

REACTIONS (4)
  - Hypercapnia [Unknown]
  - Pulmonary hypertension [Unknown]
  - Chronic obstructive pulmonary disease [Unknown]
  - Product use issue [Unknown]
